FAERS Safety Report 11891990 (Version 1)
Quarter: 2016Q1

REPORT INFORMATION
  Report Type: Spontaneous
  Country: US (occurrence: None)
  Receive Date: 20160105
  Receipt Date: 20160105
  Transmission Date: 20160526
  Serious: No
  Sender: FDA-Public Use
  Company Number: None

PATIENT
  Age: 29 Year
  Sex: Female

DRUGS (1)
  1. ADDERALL [Suspect]
     Active Substance: AMPHETAMINE ASPARTATE\AMPHETAMINE SULFATE\DEXTROAMPHETAMINE SACCHARATE\DEXTROAMPHETAMINE SULFATE
     Indication: ATTENTION DEFICIT/HYPERACTIVITY DISORDER
     Route: 048
     Dates: start: 20160101, end: 20160104

REACTIONS (7)
  - Vomiting [None]
  - Drug ineffective [None]
  - Product quality issue [None]
  - Dizziness [None]
  - Headache [None]
  - Nausea [None]
  - Product substitution issue [None]

NARRATIVE: CASE EVENT DATE: 20160101
